FAERS Safety Report 18365284 (Version 1)
Quarter: 2020Q4

REPORT INFORMATION
  Report Type: Spontaneous
  Country: US (occurrence: US)
  Receive Date: 20201009
  Receipt Date: 20201009
  Transmission Date: 20210114
  Serious: Yes (Other)
  Sender: FDA-Public Use
  Company Number: US-BAUSCH-BL-2020-028163

PATIENT
  Age: 38 Month
  Sex: Female

DRUGS (1)
  1. ATROPINE. [Suspect]
     Active Substance: ATROPINE
     Indication: AMBLYOPIA
     Dosage: SINGLE DROP
     Route: 065

REACTIONS (1)
  - Refractive amblyopia [Recovering/Resolving]
